FAERS Safety Report 5006628-2 (Version None)
Quarter: 2006Q2

REPORT INFORMATION
  Report Type: 
  Country: None (occurrence: None)
  Receive Date: 20060516
  Receipt Date: 20060509
  Transmission Date: 20061013
  Serious: Yes (Death, Hospitalization)
  Sender: FDA-Public Use
  Company Number: HQWYE250310MAY06

PATIENT
  Age: 83 Year
  Sex: Male

DRUGS (9)
  1. CORDARONE [Suspect]
     Indication: ARRHYTHMIA
     Dosage: 200 MG 2X PER 1 DAY ORAL
     Route: 048
     Dates: start: 20050401, end: 20060414
  2. ASPIRIN [Concomitant]
  3. ALLOPURINOL [Concomitant]
  4. RAMIPRIL [Concomitant]
  5. AMLODIPINE [Concomitant]
  6. BISOPROLOL FUMARATE [Concomitant]
  7. OMACOR (OMEGA-3 POLYUNSATURATED FATTY ACIDS) [Concomitant]
  8. ATORVASTATIN CALCIUM [Concomitant]
  9. SERETIDE (SALMETEROL/FLUTICASONE) [Concomitant]

REACTIONS (3)
  - ACUTE MYOCARDIAL INFARCTION [None]
  - LEFT VENTRICULAR FAILURE [None]
  - PNEUMONITIS [None]
